FAERS Safety Report 10227634 (Version 1)
Quarter: 2014Q2

REPORT INFORMATION
  Report Type: Spontaneous
  Country: AU (occurrence: AU)
  Receive Date: 20140610
  Receipt Date: 20140610
  Transmission Date: 20141212
  Serious: Yes (Hospitalization)
  Sender: FDA-Public Use
  Company Number: AU-009507513-1406AUS001657

PATIENT
  Age: 72 Year
  Sex: Female

DRUGS (7)
  1. EZETIMIBE [Suspect]
  2. ROSUVASTATIN CALCIUM [Suspect]
  3. PACLITAXEL [Suspect]
  4. ASPIRIN [Concomitant]
  5. CLOPIDOGREL [Concomitant]
  6. GEMFIBROZIL [Concomitant]
  7. RAMIPRIL [Concomitant]

REACTIONS (5)
  - Vasculitis [Unknown]
  - Pain [Unknown]
  - Hypersensitivity [Unknown]
  - Skin mass [Unknown]
  - Pruritus [Unknown]
